FAERS Safety Report 8283426-8 (Version None)
Quarter: 2012Q2

REPORT INFORMATION
  Report Type: 
  Country: None (occurrence: None)
  Receive Date: 20120413
  Receipt Date: 20120404
  Transmission Date: 20120825
  Serious: Yes (Hospitalization)
  Sender: FDA-Public Use
  Company Number: US-ELI_LILLY_AND_COMPANY-US201204001904

PATIENT
  Sex: Female

DRUGS (2)
  1. PREDNISONE TAB [Concomitant]
  2. HUMATROPE [Suspect]
     Indication: BLOOD GROWTH HORMONE
     Dosage: 5 MG, QD
     Route: 058

REACTIONS (1)
  - OBSTETRICAL PROCEDURE [None]
